FAERS Safety Report 8208206-0 (Version None)
Quarter: 2012Q1

REPORT INFORMATION
  Report Type: 
  Country: None (occurrence: None)
  Receive Date: 20120314
  Receipt Date: 20120309
  Transmission Date: 20120608
  Serious: Yes (Hospitalization, Other)
  Sender: FDA-Public Use
  Company Number: PHEH2012US005388

PATIENT
  Sex: Male

DRUGS (3)
  1. CLOZARIL [Suspect]
     Indication: SCHIZOPHRENIA
     Dates: start: 20120226
  2. CLOZARIL [Suspect]
     Dosage: 250 MG AM
  3. CLOZARIL [Suspect]
     Dosage: 100 MG, BID

REACTIONS (4)
  - DROOLING [None]
  - DYSSTASIA [None]
  - ABNORMAL BEHAVIOUR [None]
  - SPEECH DISORDER [None]
